FAERS Safety Report 6165628-X (Version None)
Quarter: 2009Q2

REPORT INFORMATION
  Report Type: 
  Country: None (occurrence: None)
  Receive Date: 20090423
  Receipt Date: 20090413
  Transmission Date: 20091009
  Serious: Yes (Death, Hospitalization)
  Sender: FDA-Public Use
  Company Number: US-BAXTER-2009BH005613

PATIENT
  Age: 77 Year
  Sex: Male

DRUGS (3)
  1. DIANEAL [Suspect]
     Indication: PERITONEAL DIALYSIS
     Route: 033
     Dates: end: 20090315
  2. DIANEAL [Suspect]
     Indication: PERITONEAL DIALYSIS
     Route: 033
  3. EXTRANEAL [Suspect]
     Indication: PERITONEAL DIALYSIS
     Route: 033
     Dates: end: 20090315

REACTIONS (2)
  - CHEST PAIN [None]
  - MYOCARDIAL INFARCTION [None]
